FAERS Safety Report 9011949 (Version 1)
Quarter: 2012Q4

REPORT INFORMATION
  Report Type: Spontaneous
  Country: IT (occurrence: None)
  Receive Date: 20121228
  Receipt Date: 20121228
  Transmission Date: 20130627
  Serious: Yes (Other)
  Sender: FDA-Public Use
  Company Number: FK201204117

PATIENT
  Age: 65 Year
  Sex: Male

DRUGS (4)
  1. OXALIPLATIN (OXALIPLATIN) [Suspect]
     Indication: COLON CANCER
     Dates: start: 20120626, end: 20121026
  2. FLUOROURACIL (FLUOROURACIL) [Suspect]
     Indication: COLON CANCER
     Route: 042
     Dates: start: 20120626, end: 20121026
  3. LEVOFOLENE (CALCIUM LEVOFOLINATE) [Concomitant]
  4. CARDIOASPIRIN (ACETYLSALICYLIC ACID) [Concomitant]

REACTIONS (2)
  - Blood iron increased [None]
  - Hyperbilirubinaemia [None]
